FAERS Safety Report 8357405-6 (Version None)
Quarter: 2012Q2

REPORT INFORMATION
  Report Type: 
  Country: None (occurrence: None)
  Receive Date: 20120510
  Receipt Date: 20120427
  Transmission Date: 20120825
  Serious: Yes (Other)
  Sender: FDA-Public Use
  Company Number: ES-1191890

PATIENT
  Age: 76 Year
  Sex: Female

DRUGS (1)
  1. TOBRADEX [Suspect]
     Indication: CORNEAL OEDEMA
     Dosage: (OPHTHALMIC)
     Route: 047

REACTIONS (4)
  - CORNEAL LEUKOMA [None]
  - INFECTIOUS CRYSTALLINE KERATOPATHY [None]
  - ENTEROCOCCUS TEST POSITIVE [None]
  - CORNEAL OPACITY [None]
